FAERS Safety Report 9494495 (Version 2)
Quarter: 2013Q3

REPORT INFORMATION
  Report Type: Report from Study
  Country: US (occurrence: US)
  Receive Date: 20130903
  Receipt Date: 20130925
  Transmission Date: 20140515
  Serious: Yes (Death, Hospitalization, Other)
  Sender: FDA-Public Use
  Company Number: US-ASTELLAS-2013US009242

PATIENT
  Age: 73 Year
  Sex: Male

DRUGS (2)
  1. ERLOTINIB TABLET [Suspect]
     Indication: PANCREATIC CARCINOMA
     Dosage: 100 MG, UID/QD
     Route: 048
     Dates: start: 20130626
  2. COUMADIN                           /00014802/ [Concomitant]
     Indication: CEREBROVASCULAR ACCIDENT

REACTIONS (12)
  - Neutropenia [Unknown]
  - Hypotension [Unknown]
  - Scrotal disorder [Unknown]
  - Pancytopenia [Unknown]
  - Dehydration [Unknown]
  - Cachexia [Unknown]
  - Haematochezia [Unknown]
  - International normalised ratio increased [Unknown]
  - Oedema peripheral [Unknown]
  - Asthenia [Unknown]
  - Cardio-respiratory arrest [Fatal]
  - Malignant neoplasm progression [Fatal]
